FAERS Safety Report 8881740 (Version 1)
Quarter: 2012Q4

REPORT INFORMATION
  Report Type: 
  Country: US (occurrence: US)
  Receive Date: 20121101
  Receipt Date: 20121101
  Transmission Date: 20130627
  Serious: Yes (Other)
  Sender: FDA-Public Use
  Company Number: US-ELI_LILLY_AND_COMPANY-US201111000449

PATIENT
  Age: 80 None
  Sex: Female

DRUGS (4)
  1. FORTEO [Suspect]
     Indication: OSTEOPOROSIS
     Dosage: 20 ug, qd
     Route: 065
     Dates: start: 20110825
  2. FORTEO [Suspect]
     Dosage: 20 ug, qd
     Route: 065
  3. FORTEO [Suspect]
     Dosage: 20 ug, qd
  4. FORTEO [Suspect]
     Dosage: 20 ug, qd

REACTIONS (9)
  - Leukaemia [Unknown]
  - Cardiac disorder [Unknown]
  - Oedema peripheral [Not Recovered/Not Resolved]
  - Flatulence [Unknown]
  - Eructation [Unknown]
  - Platelet count decreased [Unknown]
  - Bronchitis [Unknown]
  - Cataract operation [Unknown]
  - Visual impairment [Unknown]
